FAERS Safety Report 21471145 (Version 1)
Quarter: 2022Q4

REPORT INFORMATION
  Report Type: Spontaneous
  Country: CN (occurrence: CN)
  Receive Date: 20221018
  Receipt Date: 20221018
  Transmission Date: 20230113
  Serious: Yes (Disabling)
  Sender: FDA-Public Use
  Company Number: CN-BAYER-2022A143405

PATIENT
  Age: 60 Year
  Sex: Female
  Weight: 57 kg

DRUGS (6)
  1. LORATADINE [Suspect]
     Active Substance: LORATADINE
     Indication: Dermatitis
     Dosage: 10 MG, QD
     Route: 048
     Dates: start: 20220903, end: 20220912
  2. HEPARIN SODIUM [Suspect]
     Active Substance: HEPARIN SODIUM
     Indication: Anticoagulant therapy
     Dosage: 2125 DF, QD
     Route: 058
     Dates: start: 20220826, end: 20220906
  3. IMRECOXIB [Suspect]
     Active Substance: IMRECOXIB
     Indication: Antiinflammatory therapy
     Dosage: 0.1 G, BID
     Route: 048
     Dates: start: 20220902, end: 20220912
  4. IMRECOXIB [Suspect]
     Active Substance: IMRECOXIB
     Indication: Analgesic therapy
  5. ALFACALCIDOL [Concomitant]
     Active Substance: ALFACALCIDOL
     Dosage: 0.5 ?G, QD
     Route: 048
     Dates: start: 20220826, end: 20220912
  6. MIACALCIC [Concomitant]
     Active Substance: CALCITONIN SALMON
     Dosage: 50 DF, QD
     Route: 030
     Dates: start: 20220826, end: 20220912

REACTIONS (1)
  - Hepatic function abnormal [Recovering/Resolving]

NARRATIVE: CASE EVENT DATE: 20220906
